FAERS Safety Report 25346639 (Version 1)
Quarter: 2025Q2

REPORT INFORMATION
  Report Type: Spontaneous
  Country: CA (occurrence: CA)
  Receive Date: 20250522
  Receipt Date: 20250522
  Transmission Date: 20250717
  Serious: Yes (Hospitalization)
  Sender: PFIZER
  Company Number: CA-PFIZER INC-202500105028

PATIENT
  Age: 69 Year
  Sex: Male
  Weight: 104 kg

DRUGS (19)
  1. FRAGMIN [Suspect]
     Active Substance: DALTEPARIN SODIUM
     Indication: Pulmonary embolism
     Dosage: 10000.0 IU, 2X/DAY
  2. FRAGMIN [Suspect]
     Active Substance: DALTEPARIN SODIUM
     Indication: Deep vein thrombosis
  3. ACETAMINOPHEN [Concomitant]
     Active Substance: ACETAMINOPHEN
  4. ACYCLOVIR [Concomitant]
     Active Substance: ACYCLOVIR
  5. DEXAMETHASONE [Concomitant]
     Active Substance: DEXAMETHASONE
     Route: 065
  6. FENTANYL [Concomitant]
     Active Substance: FENTANYL
  7. FUROSEMIDE [Concomitant]
     Active Substance: FUROSEMIDE
     Route: 065
  8. HYDROMORPHONE [Concomitant]
     Active Substance: HYDROMORPHONE
  9. INSULIN NOS [Concomitant]
     Active Substance: INSULIN NOS
  10. LORAZEPAM [Concomitant]
     Active Substance: LORAZEPAM
     Route: 065
  11. POLYETHYLENE GLYCOLS [Concomitant]
     Active Substance: POLYETHYLENE GLYCOLS
  12. POTASSIUM [Concomitant]
     Active Substance: POTASSIUM
  13. PROPOFOL [Concomitant]
     Active Substance: PROPOFOL
     Route: 065
  14. QUETIAPINE [Concomitant]
     Active Substance: QUETIAPINE
  15. ROCURONIUM [Concomitant]
     Active Substance: ROCURONIUM BROMIDE
  16. ALBUTEROL [Concomitant]
     Active Substance: ALBUTEROL
  17. TACROLIMUS [Concomitant]
     Active Substance: TACROLIMUS
  18. TAMSULOSIN [Concomitant]
     Active Substance: TAMSULOSIN
  19. VITAMIN D NOS [Concomitant]
     Active Substance: CHOLECALCIFEROL\ERGOCALCIFEROL

REACTIONS (1)
  - Haematoma [Recovered/Resolved]
